FAERS Safety Report 11062328 (Version 1)
Quarter: 2015Q2

REPORT INFORMATION
  Report Type: Spontaneous
  Country: DE (occurrence: DE)
  Receive Date: 20150424
  Receipt Date: 20150424
  Transmission Date: 20150821
  Serious: Yes (Other)
  Sender: FDA-Public Use
  Company Number: DE-TEVA-555996GER

PATIENT
  Age: 43 Year
  Sex: Male

DRUGS (1)
  1. DOXYLAMINE [Suspect]
     Active Substance: DOXYLAMINE
     Route: 048

REACTIONS (3)
  - Toxicity to various agents [Unknown]
  - Head injury [None]
  - Completed suicide [None]
